FAERS Safety Report 22313164 (Version 2)
Quarter: 2023Q2

REPORT INFORMATION
  Report Type: Spontaneous
  Country: US (occurrence: US)
  Receive Date: 20230512
  Receipt Date: 20230525
  Transmission Date: 20230721
  Serious: No
  Sender: FDA-Public Use
  Company Number: US-BIOVITRUM-2023-US-010122

PATIENT
  Sex: Female

DRUGS (2)
  1. DOPTELET [Suspect]
     Active Substance: AVATROMBOPAG MALEATE
     Indication: Platelet count decreased
     Dosage: 20 MG DAILY
  2. LASIX [Concomitant]
     Active Substance: FUROSEMIDE
     Indication: Product used for unknown indication

REACTIONS (4)
  - Dyspnoea [Unknown]
  - Weight increased [Unknown]
  - Joint swelling [Unknown]
  - Fluid retention [Unknown]
